FAERS Safety Report 5812611-7 (Version None)
Quarter: 2008Q3

REPORT INFORMATION
  Report Type: 
  Country: None (occurrence: None)
  Receive Date: 20080711
  Receipt Date: 20080627
  Transmission Date: 20090109
  Serious: Yes (Hospitalization)
  Sender: FDA-Public Use
  Company Number: 2007BI010083

PATIENT
  Age: 59 Year
  Sex: Male

DRUGS (6)
  1. TYSABRI [Suspect]
     Indication: MULTIPLE SCLEROSIS
     Dosage: 300 MG; QM; IV
     Route: 042
     Dates: start: 20070307, end: 20070307
  2. TOPAMAX (CON.) [Concomitant]
  3. VALIUM (CON.) [Concomitant]
  4. CYMBALTA (CON.) [Concomitant]
  5. DANTROLENE (CON.) [Concomitant]
  6. DARVOCET (CON.) [Concomitant]

REACTIONS (9)
  - CONDITION AGGRAVATED [None]
  - DIPLOPIA [None]
  - MOVEMENT DISORDER [None]
  - MULTIPLE SCLEROSIS [None]
  - MUSCULAR WEAKNESS [None]
  - NO THERAPEUTIC RESPONSE [None]
  - PAIN [None]
  - PAIN IN EXTREMITY [None]
  - SPINAL OSTEOARTHRITIS [None]
